FAERS Safety Report 19159610 (Version 2)
Quarter: 2021Q2

REPORT INFORMATION
  Report Type: Spontaneous
  Country: PT (occurrence: PT)
  Receive Date: 20210420
  Receipt Date: 20210504
  Transmission Date: 20210717
  Serious: Yes (Other)
  Sender: FDA-Public Use
  Company Number: PT-TEVA-2021-PT-1901567

PATIENT
  Age: 40 Year
  Sex: Female

DRUGS (1)
  1. EFAVIRENZ + EMTRICITABINA + TENOFOVIR TEVA [Suspect]
     Active Substance: EFAVIRENZ\EMTRICITABINE\TENOFOVIR DISOPROXIL FUMARATE
     Indication: HIV INFECTION
     Dosage: 600 MILLIGRAM DAILY;
     Route: 048
     Dates: start: 20210224, end: 20210224

REACTIONS (5)
  - Nausea [Unknown]
  - Malaise [Unknown]
  - Dizziness [Unknown]
  - Insomnia [Unknown]
  - Vomiting [Unknown]

NARRATIVE: CASE EVENT DATE: 20210224
